FAERS Safety Report 6854109-3 (Version None)
Quarter: 2010Q3

REPORT INFORMATION
  Report Type: 
  Country: None (occurrence: None)
  Receive Date: 20100717
  Receipt Date: 20071226
  Transmission Date: 20110219
  Serious: No
  Sender: FDA-Public Use
  Company Number: US-PFIZER INC-2008000549

PATIENT
  Sex: Male
  Weight: 70.454 kg

DRUGS (7)
  1. CHANTIX [Suspect]
     Indication: SMOKING CESSATION THERAPY
     Dates: start: 20071222
  2. LAMICTAL [Concomitant]
  3. BACLOFEN [Concomitant]
  4. ZOLOFT [Concomitant]
  5. COPAXONE [Concomitant]
     Route: 058
  6. SYNTHROID [Concomitant]
  7. WELLBUTRIN [Concomitant]
     Indication: SMOKING CESSATION THERAPY

REACTIONS (1)
  - NIGHTMARE [None]
